FAERS Safety Report 4754978-7 (Version None)
Quarter: 2005Q3

REPORT INFORMATION
  Report Type: 
  Country: None (occurrence: None)
  Receive Date: 20050829
  Receipt Date: 20050418
  Transmission Date: 20060218
  Serious: Yes (Hospitalization)
  Sender: FDA-Public Use
  Company Number: PHEH2005US04578

PATIENT
  Age: 81 Year
  Sex: Female
  Weight: 52 kg

DRUGS (8)
  1. DILTIAZEM [Concomitant]
     Dosage: 360 MG, QD
     Route: 048
     Dates: start: 20030101
  2. LIPITOR [Concomitant]
     Indication: BLOOD CHOLESTEROL INCREASED
     Dosage: 10 MG, QD
     Route: 048
     Dates: start: 20010101
  3. DIOVAN [Concomitant]
     Indication: HYPERTENSION
     Dosage: 160 MG, QD
     Route: 048
     Dates: start: 20000101
  4. ACETAMINOPHEN AND HYDROCODONE BITARTRATE [Concomitant]
     Indication: BACK PAIN
     Dosage: 5/500 MG, UNKN
     Route: 048
  5. GLEEVEC [Suspect]
     Indication: PSEUDOMYXOMA PERITONEI
     Dosage: 400 MG, QD
     Route: 048
     Dates: start: 20050301, end: 20050503
  6. DARVOCET-N 100 [Concomitant]
     Dosage: 100 MG, Q6H PRN
     Route: 048
     Dates: start: 20050420
  7. ARANESP [Concomitant]
     Indication: ANAEMIA OF MALIGNANT DISEASE
     Dosage: 200 MG, UNK
  8. CELEBREX [Concomitant]
     Route: 048

REACTIONS (9)
  - ABDOMINAL DISTENSION [None]
  - ASPIRATION PLEURAL CAVITY [None]
  - DYSPNOEA [None]
  - EJECTION FRACTION DECREASED [None]
  - FAILURE TO THRIVE [None]
  - HEART RATE INCREASED [None]
  - IRON DEFICIENCY ANAEMIA [None]
  - PLEURAL EFFUSION [None]
  - SUPRAVENTRICULAR TACHYCARDIA [None]
